FAERS Safety Report 9361815 (Version 2)
Quarter: 2013Q2

REPORT INFORMATION
  Report Type: Spontaneous
  Country: US (occurrence: US)
  Receive Date: 20130621
  Receipt Date: 20130626
  Transmission Date: 20140414
  Serious: Yes (Other)
  Sender: FDA-Public Use
  Company Number: US-BRISTOL-MYERS SQUIBB COMPANY-19027150

PATIENT
  Age: 57 Year
  Sex: Female
  Weight: 96.6 kg

DRUGS (4)
  1. BYDUREON [Suspect]
     Indication: TYPE 2 DIABETES MELLITUS
     Route: 058
     Dates: end: 20130617
  2. LEVEMIR [Concomitant]
  3. INSULIN [Concomitant]
  4. METFORMIN [Concomitant]

REACTIONS (3)
  - Blood triglycerides increased [Not Recovered/Not Resolved]
  - Nausea [Not Recovered/Not Resolved]
  - Weight increased [Unknown]
